FAERS Safety Report 12139423 (Version 2)
Quarter: 2016Q2

REPORT INFORMATION
  Report Type: Spontaneous
  Country: FR (occurrence: FR)
  Receive Date: 20160303
  Receipt Date: 20160516
  Transmission Date: 20160815
  Serious: Yes (Death, Life-Threatening, Hospitalization)
  Sender: FDA-Public Use
  Company Number: FR-ROCHE-1719064

PATIENT
  Age: 76 Year
  Sex: Female
  Weight: 60 kg

DRUGS (12)
  1. MABTHERA [Suspect]
     Active Substance: RITUXIMAB
     Dosage: 4 INFUSIONS IN TOTAL (600 MG PER WEEK)
     Route: 041
     Dates: start: 20151217, end: 20160106
  2. OROCAL (FRANCE) [Concomitant]
     Route: 065
  3. SOLU-MEDROL [Concomitant]
     Active Substance: METHYLPREDNISOLONE SODIUM SUCCINATE
     Dosage: 15/DEC2015 AND 16/DEC/2015
     Route: 065
     Dates: start: 20151214
  4. KENZEN [Concomitant]
     Active Substance: CANDESARTAN
     Route: 065
  5. MABTHERA [Suspect]
     Active Substance: RITUXIMAB
     Indication: ANTI-NEUTROPHIL CYTOPLASMIC ANTIBODY POSITIVE VASCULITIS
     Route: 041
     Dates: end: 20151214
  6. RIMIFON [Suspect]
     Active Substance: ISONIAZID
     Indication: PRODUCT USED FOR UNKNOWN INDICATION
     Route: 048
     Dates: start: 201512, end: 20160115
  7. CORTANCYL [Concomitant]
     Active Substance: PREDNISONE
     Dosage: 15/DEC2015 AND 16/DEC/2015
     Route: 065
     Dates: start: 20151214
  8. ZOLPIDEM [Concomitant]
     Active Substance: ZOLPIDEM\ZOLPIDEM TARTRATE
     Route: 065
  9. BACTRIM [Suspect]
     Active Substance: SULFAMETHOXAZOLE\TRIMETHOPRIM
     Indication: PRODUCT USED FOR UNKNOWN INDICATION
     Route: 048
     Dates: start: 201512, end: 20160115
  10. EZETROL [Concomitant]
     Active Substance: EZETIMIBE
     Route: 065
  11. CARDENSIEL [Concomitant]
     Active Substance: BISOPROLOL FUMARATE
     Route: 065
  12. ASPEGIC [Concomitant]
     Active Substance: ASPIRIN DL-LYSINE
     Route: 065

REACTIONS (5)
  - Pancreatitis acute [Fatal]
  - Encephalopathy [Fatal]
  - Disseminated intravascular coagulation [Fatal]
  - Hepatocellular injury [Not Recovered/Not Resolved]
  - Acute kidney injury [Not Recovered/Not Resolved]

NARRATIVE: CASE EVENT DATE: 20160114
